FAERS Safety Report 5676576-3 (Version None)
Quarter: 2008Q1

REPORT INFORMATION
  Report Type: 
  Country: None (occurrence: None)
  Receive Date: 20080321
  Receipt Date: 20080321
  Transmission Date: 20080703
  Serious: Yes (Hospitalization, Other)
  Sender: FDA-Public Use
  Company Number: None

PATIENT
  Age: 60 Year
  Sex: Male
  Weight: 79.5 kg

DRUGS (18)
  1. REVLIMID [Suspect]
     Dosage: 2.5MG QD DAYS 1-21 OF 28 DAY CYCLE
     Dates: start: 20080225
  2. FLUDARABINE [Suspect]
     Dosage: 25MG/M2 DAYS 1-3 IV
     Route: 042
  3. RITUXIMAB [Suspect]
     Dosage: 375 MG/M2 DAYS 1 + 3
  4. ACYCLOVIR [Concomitant]
  5. ATIVAN [Concomitant]
  6. COMPAZINE (PROCHLORPERAZINE MALEATE) [Concomitant]
  7. DIPROLENE (BETAMETHASONE DIPROPIONATE) [Concomitant]
  8. DOXEPIN HCL [Concomitant]
  9. EFFEXOR XR [Concomitant]
  10. HYDROXYZINE HCL [Concomitant]
  11. LAC-HYDRIN 12% (AMMONIUM LACTATE 12%) [Concomitant]
  12. LISINOPRIL [Concomitant]
  13. MEPRON [Concomitant]
  14. PRILOSEC [Concomitant]
  15. RETIN-A 0.025% CREAM (RETINOIC ACID 0.025% CREAM) [Concomitant]
  16. TRAZODONE 0.1% (TRIAMCINOLONE ACETONIDE 0.1%) [Concomitant]
  17. WELLBUTRIN SR (BUPROPION HCL SUSTAINED RELEASE (12 HR TAB)) [Concomitant]
  18. ZOCOR [Concomitant]

REACTIONS (1)
  - BLOOD CREATINE PHOSPHOKINASE INCREASED [None]
